FAERS Safety Report 19640582 (Version 1)
Quarter: 2021Q3

REPORT INFORMATION
  Report Type: Spontaneous
  Country: US (occurrence: US)
  Receive Date: 20210729
  Receipt Date: 20210729
  Transmission Date: 20211014
  Serious: No
  Sender: FDA-Public Use
  Company Number: US-PERRIGO-21US004185

PATIENT
  Age: 36 Year
  Sex: Male
  Weight: 92.52 kg

DRUGS (7)
  1. BIOTIN [Concomitant]
     Active Substance: BIOTIN
     Indication: ALOPECIA
  2. MINOXIDIL. [Suspect]
     Active Substance: MINOXIDIL
     Indication: ALOPECIA
     Dosage: 1 ML, BID
     Route: 061
     Dates: start: 2020, end: 2020
  3. FISH OIL [Concomitant]
     Active Substance: FISH OIL
     Indication: SUPPLEMENTATION THERAPY
     Dosage: UNK
     Route: 065
     Dates: start: 2011
  4. BIOTIN [Concomitant]
     Active Substance: BIOTIN
     Indication: SUPPLEMENTATION THERAPY
     Dosage: UNK
     Route: 065
     Dates: start: 2011
  5. MINOXIDIL. [Suspect]
     Active Substance: MINOXIDIL
     Dosage: 1 ML, BID
     Route: 061
     Dates: start: 202011, end: 20210322
  6. DESCOVY [Concomitant]
     Active Substance: EMTRICITABINE\TENOFOVIR ALAFENAMIDE FUMARATE
     Indication: PROPHYLAXIS
     Dosage: UNK
     Route: 065
     Dates: start: 2019
  7. MULTIVITAMINS, PLAIN [Concomitant]
     Active Substance: VITAMINS
     Indication: SUPPLEMENTATION THERAPY
     Dosage: UNK
     Route: 065
     Dates: start: 2011

REACTIONS (2)
  - Weight increased [Not Recovered/Not Resolved]
  - Swelling face [Recovered/Resolved]

NARRATIVE: CASE EVENT DATE: 202012
